FAERS Safety Report 7449786-2 (Version None)
Quarter: 2011Q2

REPORT INFORMATION
  Report Type: 
  Country: None (occurrence: None)
  Receive Date: 20110421
  Receipt Date: 20110407
  Transmission Date: 20111010
  Serious: Yes (Hospitalization)
  Sender: FDA-Public Use
  Company Number: 2011SP001150

PATIENT
  Age: 55 Year
  Sex: Male
  Weight: 90 kg

DRUGS (12)
  1. MONTELUKAST [Concomitant]
  2. XOPENEX [Suspect]
     Dosage: 90 UG; QID; INHALATION
     Route: 055
  3. TRAZODONE HCL [Concomitant]
  4. ALBUTEROL [Concomitant]
  5. CITALOPRAM HYDROBROMIDE [Concomitant]
  6. MOMETASONE [Concomitant]
  7. BUPROPION [Concomitant]
  8. SIMVASTATIN [Concomitant]
  9. IPRATROPIUM BROMIDE [Concomitant]
  10. ALBUTEROL [Concomitant]
  11. THEOPHYLLINE [Concomitant]
  12. RISPERIDONE [Concomitant]

REACTIONS (5)
  - PERSECUTORY DELUSION [None]
  - MAJOR DEPRESSION [None]
  - HALLUCINATION, AUDITORY [None]
  - PSYCHOTIC DISORDER [None]
  - SUICIDAL IDEATION [None]
